FAERS Safety Report 9409793 (Version 1)
Quarter: 2013Q3

REPORT INFORMATION
  Report Type: Spontaneous
  Country: US (occurrence: US)
  Receive Date: 20130719
  Receipt Date: 20130719
  Transmission Date: 20140515
  Serious: No
  Sender: FDA-Public Use
  Company Number: US-PFIZER INC-2013209687

PATIENT
  Age: 47 Year
  Sex: Female

DRUGS (4)
  1. NEURONTIN [Suspect]
     Dosage: 300 MG, UNK
  2. TRAMADOL HYDROCHLORIDE AUROBINDO [Suspect]
     Dosage: 50 MG, UNK
  3. ASPIRIN [Suspect]
     Dosage: 81 MG, UNK
  4. METFORMIN [Suspect]
     Dosage: 500 MG, UNK

REACTIONS (1)
  - Drug hypersensitivity [Unknown]
